FAERS Safety Report 13605941 (Version 2)
Quarter: 2017Q3

REPORT INFORMATION
  Report Type: Spontaneous
  Country: US (occurrence: US)
  Receive Date: 20170602
  Receipt Date: 20170720
  Transmission Date: 20171127
  Serious: No
  Sender: FDA-Public Use
  Company Number: US-PFIZER INC-2017240487

PATIENT
  Age: 66 Year
  Sex: Female
  Weight: 81.65 kg

DRUGS (3)
  1. IBUPROFEN. [Suspect]
     Active Substance: IBUPROFEN
     Indication: ARTHROPATHY
     Dosage: 800 MG, AS NEEDED (1 IN THE EVENING OR AT NIGHT AND AT LEAST 8 HOURS APART, Q 8 HRS PRN)
     Route: 048
     Dates: end: 20170405
  2. TYLENOL [Suspect]
     Active Substance: ACETAMINOPHEN
     Dosage: UNK,IN THE EVENING OR AT NIGHT AND WOULD ALTERNATE THEM WITH THE IBUPROFEN
  3. IBUPROFEN. [Suspect]
     Active Substance: IBUPROFEN
     Indication: PAIN

REACTIONS (2)
  - Dyspepsia [Unknown]
  - Diarrhoea [Unknown]
